FAERS Safety Report 10248366 (Version 1)
Quarter: 2014Q2

REPORT INFORMATION
  Report Type: Spontaneous
  Country: GB (occurrence: GB)
  Receive Date: 20140620
  Receipt Date: 20140620
  Transmission Date: 20141212
  Serious: Yes (Other)
  Sender: FDA-Public Use
  Company Number: GB-009507513-1406GBR008230

PATIENT
  Sex: Male

DRUGS (2)
  1. SINEMET [Suspect]
     Dosage: 62.5 MG(12.5/50MG),  TID
     Route: 048
     Dates: start: 20140611
  2. REQUIP [Suspect]

REACTIONS (7)
  - Hemiparesis [Unknown]
  - Asthenia [Unknown]
  - Hypoaesthesia [Unknown]
  - Tremor [Unknown]
  - Muscle twitching [Unknown]
  - Movement disorder [Unknown]
  - Pain [Not Recovered/Not Resolved]
